FAERS Safety Report 18474778 (Version 1)
Quarter: 2020Q4

REPORT INFORMATION
  Report Type: Spontaneous
  Country: US (occurrence: US)
  Receive Date: 20201106
  Receipt Date: 20201106
  Transmission Date: 20210114
  Serious: Yes (Hospitalization)
  Sender: FDA-Public Use
  Company Number: US-VERTEX PHARMACEUTICALS-2020-021700

PATIENT
  Sex: Female
  Weight: 48 kg

DRUGS (3)
  1. TYLENOL [Concomitant]
     Active Substance: ACETAMINOPHEN
     Dosage: UNK
  2. IBUPROFEN. [Concomitant]
     Active Substance: IBUPROFEN
     Dosage: UNK
  3. TRIKAFTA [Suspect]
     Active Substance: ELEXACAFTOR\IVACAFTOR\TEZACAFTOR
     Indication: CYSTIC FIBROSIS
     Dosage: 2 ORANGE TABS (100 MG ELEXA/ 50 MG TEZA/ 75 MG IVA) IN AM AND 1 BLUE TAB (150 MG IVA) IN PM
     Route: 048

REACTIONS (3)
  - Enterovirus infection [Unknown]
  - Rhinovirus infection [Unknown]
  - Obstructive airways disorder [Unknown]

NARRATIVE: CASE EVENT DATE: 2020
